FAERS Safety Report 24387180 (Version 1)
Quarter: 2024Q4

REPORT INFORMATION
  Report Type: Spontaneous
  Country: US (occurrence: US)
  Receive Date: 20241002
  Receipt Date: 20241002
  Transmission Date: 20250115
  Serious: No
  Sender: QOL
  Company Number: US-QOL Medical, LLC-2162344

PATIENT
  Age: 50 Year
  Sex: Female
  Weight: 113.64 kg

DRUGS (1)
  1. SUCRAID [Suspect]
     Active Substance: SACROSIDASE
     Dates: start: 20230828

REACTIONS (2)
  - Abdominal pain [Unknown]
  - Seizure [Unknown]

NARRATIVE: CASE EVENT DATE: 20230828
